FAERS Safety Report 12238245 (Version 1)
Quarter: 2016Q2

REPORT INFORMATION
  Report Type: Spontaneous
  Country: US (occurrence: None)
  Receive Date: 20160404
  Receipt Date: 20160404
  Transmission Date: 20160815
  Serious: Yes (Hospitalization)
  Sender: FDA-Public Use
  Company Number: None

PATIENT
  Age: 67 Year
  Sex: Male
  Weight: 90.72 kg

DRUGS (2)
  1. TRAMETINIB [Suspect]
     Active Substance: TRAMETINIB
     Indication: MALIGNANT MELANOMA
     Route: 048
     Dates: start: 20150330, end: 20150401
  2. DABRAFENIB [Suspect]
     Active Substance: DABRAFENIB
     Indication: MALIGNANT MELANOMA
     Route: 048
     Dates: start: 20150330, end: 20150401

REACTIONS (5)
  - Abdominal pain [None]
  - Pyrexia [None]
  - Hypotension [None]
  - Rhabdomyolysis [None]
  - Asthenia [None]

NARRATIVE: CASE EVENT DATE: 20150401
